FAERS Safety Report 14277484 (Version 10)
Quarter: 2018Q1

REPORT INFORMATION
  Report Type: Spontaneous
  Country: FR (occurrence: FR)
  Receive Date: 20171212
  Receipt Date: 20180314
  Transmission Date: 20180508
  Serious: Yes (Hospitalization, Other)
  Sender: FDA-Public Use
  Company Number: PHHY2017FR183147

PATIENT
  Sex: Female

DRUGS (34)
  1. CYTARABINE. [Suspect]
     Active Substance: CYTARABINE
     Indication: ACUTE LYMPHOCYTIC LEUKAEMIA
     Dosage: UNK
     Route: 037
     Dates: start: 20170503, end: 20171027
  2. CYCLOPHOSPHAMIDE. [Suspect]
     Active Substance: CYCLOPHOSPHAMIDE
     Indication: ACUTE LYMPHOCYTIC LEUKAEMIA
     Dosage: 540 MG, UNK
     Route: 065
     Dates: start: 20170620, end: 20170620
  3. DOXORUBICIN [Suspect]
     Active Substance: DOXORUBICIN
     Dosage: 14 MG, UNK
     Route: 042
     Dates: start: 20170606, end: 20170606
  4. HYDROCORTISONE. [Suspect]
     Active Substance: HYDROCORTISONE
     Indication: ACUTE LYMPHOCYTIC LEUKAEMIA
     Dosage: 15 MG, UNK
     Route: 037
     Dates: start: 20170303, end: 20171027
  5. PEGASPARGASE [Suspect]
     Active Substance: PEGASPARGASE
     Indication: ACUTE LYMPHOCYTIC LEUKAEMIA
     Dosage: 1350 IU, UNK
     Route: 065
     Dates: start: 20170526, end: 20170526
  6. CYTARABINE. [Suspect]
     Active Substance: CYTARABINE
     Dosage: 30 MG, UNK
     Route: 037
     Dates: start: 20170928, end: 20170928
  7. ARACYTINE [Suspect]
     Active Substance: CYTARABINE
     Indication: ACUTE LYMPHOCYTIC LEUKAEMIA
     Dosage: 25 MG, UNK
     Route: 037
  8. 6-MERCAPTOPURINE MONOHYDRATE [Suspect]
     Active Substance: MERCAPTOPURINE
     Indication: ACUTE LYMPHOCYTIC LEUKAEMIA
     Dosage: UNK
     Route: 065
  9. VINCRISTINE [Suspect]
     Active Substance: VINCRISTINE
     Indication: ACUTE LYMPHOCYTIC LEUKAEMIA
     Dosage: 0.8 MG, UNK
     Route: 065
     Dates: start: 20170523, end: 20170523
  10. VINCRISTINE [Suspect]
     Active Substance: VINCRISTINE
     Dosage: 0.8 MG, UNK
     Route: 065
     Dates: start: 20170530, end: 20170530
  11. VINCRISTINE [Suspect]
     Active Substance: VINCRISTINE
     Dosage: 0.8 MG, UNK
     Route: 065
     Dates: start: 20170704, end: 20170704
  12. VINCRISTINE [Suspect]
     Active Substance: VINCRISTINE
     Dosage: 0.88 MG, QD
     Route: 065
     Dates: start: 20170925, end: 20171009
  13. DEXAMETHASONE. [Suspect]
     Active Substance: DEXAMETHASONE
     Indication: ACUTE LYMPHOCYTIC LEUKAEMIA
     Dosage: 42 MG, UNK
     Route: 065
  14. DEXAMETHASONE. [Suspect]
     Active Substance: DEXAMETHASONE
     Dosage: 42 MG, UNK
     Route: 048
     Dates: start: 20170909, end: 20171015
  15. PEGASPARGASE [Suspect]
     Active Substance: PEGASPARGASE
     Dosage: 1425 IU, QD
     Route: 042
     Dates: start: 20170928, end: 20170928
  16. ARACYTINE [Suspect]
     Active Substance: CYTARABINE
     Dosage: 30 MG, UNK
     Route: 037
     Dates: start: 20170928, end: 20170928
  17. METHOTREXATE. [Suspect]
     Active Substance: METHOTREXATE
     Dosage: 12 MG, UNK
     Route: 037
  18. DOXORUBICIN [Suspect]
     Active Substance: DOXORUBICIN
     Dosage: 14 MG, UNK
     Route: 042
     Dates: start: 20170530, end: 20170530
  19. HYDROCORTISONE. [Suspect]
     Active Substance: HYDROCORTISONE
     Dosage: 15 MG, QD
     Route: 037
     Dates: start: 20170928, end: 20170928
  20. ARACYTINE [Suspect]
     Active Substance: CYTARABINE
     Dosage: 30 MG, UNK
     Route: 037
  21. METHOTREXATE. [Suspect]
     Active Substance: METHOTREXATE
     Indication: ACUTE LYMPHOCYTIC LEUKAEMIA
     Dosage: UNK
     Route: 037
     Dates: start: 20161107, end: 20171027
  22. DOXORUBICIN [Suspect]
     Active Substance: DOXORUBICIN
     Indication: ACUTE LYMPHOCYTIC LEUKAEMIA
     Dosage: 14 MG, UNK
     Route: 042
     Dates: start: 20170523, end: 20170523
  23. DOXORUBICIN [Suspect]
     Active Substance: DOXORUBICIN
     Dosage: 14.4 MG, UNK
     Route: 042
     Dates: start: 20170925, end: 20171009
  24. DOXORUBICIN [Suspect]
     Active Substance: DOXORUBICIN
     Dosage: 14 MG, UNK
     Route: 042
     Dates: start: 20171009, end: 20171009
  25. PEGASPARGASE [Suspect]
     Active Substance: PEGASPARGASE
     Dosage: 1350 IU, UNK
     Route: 065
     Dates: start: 20170704, end: 20170704
  26. PEGASPARGASE [Suspect]
     Active Substance: PEGASPARGASE
     Dosage: 1350 IU, UNK
     Route: 065
  27. VINCRISTINE [Suspect]
     Active Substance: VINCRISTINE
     Dosage: 0.8 MG, UNK
     Route: 065
     Dates: start: 20170606, end: 20170606
  28. DOXORUBICIN [Suspect]
     Active Substance: DOXORUBICIN
     Dosage: 13.2 MG, UNK
     Route: 065
     Dates: start: 20170523, end: 20170523
  29. DOXORUBICIN [Suspect]
     Active Substance: DOXORUBICIN
     Dosage: 13.2 MG, UNK
     Route: 065
     Dates: start: 20170530, end: 20170530
  30. VINCRISTINE [Suspect]
     Active Substance: VINCRISTINE
     Dosage: 0.8 MG, UNK
     Route: 065
     Dates: start: 20170711, end: 20170711
  31. DEXAMETHASONE. [Suspect]
     Active Substance: DEXAMETHASONE
     Dosage: 5 MG, UNK
     Route: 048
     Dates: start: 20161112, end: 20171016
  32. METHOTREXATE. [Suspect]
     Active Substance: METHOTREXATE
     Dosage: 10 MG, UNK
     Route: 037
  33. DOXORUBICIN [Suspect]
     Active Substance: DOXORUBICIN
     Dosage: 13.2 MG, UNK
     Route: 042
     Dates: start: 20170606, end: 20170606
  34. PEGASPARGASE [Suspect]
     Active Substance: PEGASPARGASE
     Dosage: 1425 IU, UNK
     Route: 065

REACTIONS (4)
  - Febrile bone marrow aplasia [Unknown]
  - Product use in unapproved indication [Unknown]
  - Off label use [Unknown]
  - Hyperlipidaemia [Not Recovered/Not Resolved]

NARRATIVE: CASE EVENT DATE: 20170523
